FAERS Safety Report 13330606 (Version 1)
Quarter: 2017Q1

REPORT INFORMATION
  Report Type: Spontaneous
  Country: GB (occurrence: GB)
  Receive Date: 20170313
  Receipt Date: 20170313
  Transmission Date: 20170428
  Serious: Yes (Other)
  Sender: FDA-Public Use
  Company Number: GB-MYLANLABS-2017M1015288

PATIENT

DRUGS (3)
  1. CLARITHROMYCIN MYLAN [Suspect]
     Active Substance: CLARITHROMYCIN
     Indication: GASTROINTESTINAL INFECTION
     Dosage: 1 DF, QD
     Route: 048
     Dates: start: 20170220
  2. AMOXICILLIN. [Concomitant]
     Active Substance: AMOXICILLIN
  3. LANSOPRAZOLE. [Concomitant]
     Active Substance: LANSOPRAZOLE
     Dosage: UNK

REACTIONS (4)
  - Nausea [Unknown]
  - Gastrointestinal sounds abnormal [Unknown]
  - Diarrhoea [Not Recovered/Not Resolved]
  - Abdominal pain upper [Not Recovered/Not Resolved]
